FAERS Safety Report 24736869 (Version 7)
Quarter: 2025Q2

REPORT INFORMATION
  Report Type: Spontaneous
  Country: FR (occurrence: FR)
  Receive Date: 20241216
  Receipt Date: 20250529
  Transmission Date: 20250717
  Serious: Yes (Death, Life-Threatening, Other)
  Sender: ALEXION PHARMACEUTICALS
  Company Number: None

PATIENT
  Age: 87 Year
  Weight: 71 kg

DRUGS (48)
  1. ESOMEPRAZOLE [Suspect]
     Active Substance: ESOMEPRAZOLE
     Indication: Prophylaxis against gastrointestinal ulcer
  2. CANDESARTAN CILEXETIL [Suspect]
     Active Substance: CANDESARTAN CILEXETIL
     Indication: Hypertension
     Dosage: 16 MILLIGRAM, 1/DAY
  3. CANDESARTAN CILEXETIL [Suspect]
     Active Substance: CANDESARTAN CILEXETIL
     Dosage: 16 MILLIGRAM, QD
  4. CANDESARTAN CILEXETIL [Suspect]
     Active Substance: CANDESARTAN CILEXETIL
     Dosage: 16 MILLIGRAM, QD
  5. CANDESARTAN CILEXETIL [Suspect]
     Active Substance: CANDESARTAN CILEXETIL
     Dosage: 16 MG, QD
  6. PLUVICTO [Suspect]
     Active Substance: LUTETIUM LU-177 VIPIVOTIDE TETRAXETAN
     Indication: Prostate cancer metastatic
  7. PLUVICTO [Suspect]
     Active Substance: LUTETIUM LU-177 VIPIVOTIDE TETRAXETAN
     Indication: Hormone-refractory prostate cancer
  8. PLUVICTO [Suspect]
     Active Substance: LUTETIUM LU-177 VIPIVOTIDE TETRAXETAN
     Indication: Prostate cancer metastatic
  9. PLUVICTO [Suspect]
     Active Substance: LUTETIUM LU-177 VIPIVOTIDE TETRAXETAN
     Indication: Hormone-refractory prostate cancer
  10. KARDEGIC [Suspect]
     Active Substance: ASPIRIN DL-LYSINE
     Indication: Cardiovascular event prophylaxis
     Dosage: 75 MILLIGRAM, 1/DAY
  11. KARDEGIC [Suspect]
     Active Substance: ASPIRIN DL-LYSINE
  12. KARDEGIC [Suspect]
     Active Substance: ASPIRIN DL-LYSINE
     Dosage: 2024-10
  13. KARDEGIC [Suspect]
     Active Substance: ASPIRIN DL-LYSINE
     Dosage: 1 DF, QD (ORAL SOLUTION IN SINGLE-DOSE SACHETS)
  14. SERETIDE [Suspect]
     Active Substance: FLUTICASONE PROPIONATE\SALMETEROL XINAFOATE
     Indication: Chronic obstructive pulmonary disease
     Dosage: 2 DOSAGE FORM, 1/DAY
  15. SERETIDE [Suspect]
     Active Substance: FLUTICASONE PROPIONATE\SALMETEROL XINAFOATE
     Indication: Chronic obstructive pulmonary disease
     Dosage: 2 DOSAGE FORM, QD
  16. SERETIDE [Suspect]
     Active Substance: FLUTICASONE PROPIONATE\SALMETEROL XINAFOATE
     Dosage: 2 DOSAGE FORM, QD
  17. SERETIDE [Suspect]
     Active Substance: FLUTICASONE PROPIONATE\SALMETEROL XINAFOATE
     Dosage: 500/50 MICROGRAMS/DOSE, INHALATION POWDER IN SINGLE-DOSE CONTAINER
  18. HYDROCHLOROTHIAZIDE [Suspect]
     Active Substance: HYDROCHLOROTHIAZIDE
     Indication: Hypertension
     Dosage: 12.5 MILLIGRAM, 1/DAY
  19. HYDROCHLOROTHIAZIDE [Suspect]
     Active Substance: HYDROCHLOROTHIAZIDE
     Indication: Hypertension
  20. HYDROCHLOROTHIAZIDE [Suspect]
     Active Substance: HYDROCHLOROTHIAZIDE
     Dosage: 2024-10
  21. HYDROCHLOROTHIAZIDE [Suspect]
     Active Substance: HYDROCHLOROTHIAZIDE
     Dosage: 12.5 MG, QD
  22. RILMENIDINE [Suspect]
     Active Substance: RILMENIDINE
     Indication: Hypertension
     Dosage: 2 MILLIGRAM, 1/DAY
  23. RILMENIDINE [Suspect]
     Active Substance: RILMENIDINE
     Indication: Hypertension
  24. RILMENIDINE [Suspect]
     Active Substance: RILMENIDINE
     Dosage: 2024-10
  25. RILMENIDINE [Suspect]
     Active Substance: RILMENIDINE
     Dosage: 2 MG, QD
  26. IBUPROFEN [Suspect]
     Active Substance: IBUPROFEN
     Indication: Pain
     Dosage: 3 DOSAGE FORM, 1/DAY
  27. IBUPROFEN [Suspect]
     Active Substance: IBUPROFEN
  28. IBUPROFEN [Suspect]
     Active Substance: IBUPROFEN
     Dosage: 2024-10
  29. ACETAMINOPHEN [Suspect]
     Active Substance: ACETAMINOPHEN
     Indication: Pain
  30. ACETAMINOPHEN [Suspect]
     Active Substance: ACETAMINOPHEN
  31. ACETAMINOPHEN [Suspect]
     Active Substance: ACETAMINOPHEN
  32. ACETAMINOPHEN [Suspect]
     Active Substance: ACETAMINOPHEN
  33. HERBALS\SAW PALMETTO [Suspect]
     Active Substance: HERBALS\SAW PALMETTO
     Indication: Prostate cancer
     Dosage: 2 DOSAGE FORM, 1/DAY
  34. HERBALS\SAW PALMETTO [Suspect]
     Active Substance: HERBALS\SAW PALMETTO
     Indication: Prostate cancer
  35. HERBALS\SAW PALMETTO [Suspect]
     Active Substance: HERBALS\SAW PALMETTO
  36. HERBALS\SAW PALMETTO [Suspect]
     Active Substance: HERBALS\SAW PALMETTO
     Dosage: 2 DF, QD
  37. METOCLOPRAMIDE [Suspect]
     Active Substance: METOCLOPRAMIDE
     Indication: Nausea
  38. METOCLOPRAMIDE [Suspect]
     Active Substance: METOCLOPRAMIDE
  39. METOCLOPRAMIDE [Suspect]
     Active Substance: METOCLOPRAMIDE
  40. CHOLECALCIFEROL [Suspect]
     Active Substance: CHOLECALCIFEROL
     Indication: Vitamin supplementation
     Dosage: 1 DOSAGE FORM, 1/MONTH
  41. CHOLECALCIFEROL [Suspect]
     Active Substance: CHOLECALCIFEROL
  42. CHOLECALCIFEROL [Suspect]
     Active Substance: CHOLECALCIFEROL
  43. CHOLECALCIFEROL [Suspect]
     Active Substance: CHOLECALCIFEROL
     Dosage: 80,000 IU, ORAL SOLUTION IN AMPOULE
  44. TAMSULOSIN HYDROCHLORIDE [Suspect]
     Active Substance: TAMSULOSIN HYDROCHLORIDE
     Indication: Prostate cancer
     Dosage: 0.4 MILLIGRAM, 1/DAY
  45. MONTMORILLONITE [Suspect]
     Active Substance: MONTMORILLONITE
     Indication: Diarrhoea
  46. MONTMORILLONITE [Suspect]
     Active Substance: MONTMORILLONITE
     Indication: Diarrhoea
  47. MONTMORILLONITE [Suspect]
     Active Substance: MONTMORILLONITE
  48. LOPERAMIDE HYDROCHLORIDE [Suspect]
     Active Substance: LOPERAMIDE HYDROCHLORIDE
     Indication: Diarrhoea

REACTIONS (3)
  - Peptic ulcer [Fatal]
  - Acquired haemophilia [Recovering/Resolving]
  - Intentional product misuse [Unknown]
